FAERS Safety Report 7700562-2 (Version None)
Quarter: 2011Q3

REPORT INFORMATION
  Report Type: 
  Country: None (occurrence: None)
  Receive Date: 20110822
  Receipt Date: 20110812
  Transmission Date: 20111222
  Serious: Yes (Hospitalization)
  Sender: FDA-Public Use
  Company Number: AU-JNJFOC-20110806651

PATIENT
  Age: 34 Year
  Sex: Male

DRUGS (4)
  1. RISPERDAL CONSTA [Suspect]
     Indication: SCHIZOPHRENIA
     Route: 030
  2. RISPERDAL CONSTA [Suspect]
     Route: 030
  3. BENZTROPINE MESYLATE [Concomitant]
     Indication: TREMOR
     Route: 065
  4. RISPERDAL CONSTA [Suspect]
     Route: 030

REACTIONS (7)
  - SEDATION [None]
  - DYSSTASIA [None]
  - TREMOR [None]
  - ABDOMINAL PAIN UPPER [None]
  - DIARRHOEA [None]
  - JOINT SWELLING [None]
  - INAPPROPRIATE SCHEDULE OF DRUG ADMINISTRATION [None]
